FAERS Safety Report 18326569 (Version 2)
Quarter: 2022Q1

REPORT INFORMATION
  Report Type: Spontaneous
  Country: US (occurrence: US)
  Receive Date: 20200930
  Receipt Date: 20220214
  Transmission Date: 20220423
  Serious: No
  Sender: FDA-Public Use
  Company Number: US-SANOFI-00219819

PATIENT
  Age: 57 Year
  Sex: Female

DRUGS (2)
  1. DUPIXENT [Suspect]
     Active Substance: DUPILUMAB
     Indication: Asthma
     Dosage: 300 MG, QOW
     Route: 058
     Dates: start: 201910
  2. DUPIXENT [Suspect]
     Active Substance: DUPILUMAB
     Indication: Chronic rhinosinusitis with nasal polyps
     Dosage: 300 MG, QOW
     Route: 058
     Dates: start: 20191101

REACTIONS (2)
  - Vision blurred [Not Recovered/Not Resolved]
  - Oropharyngeal pain [Not Recovered/Not Resolved]
